FAERS Safety Report 19717878 (Version 1)
Quarter: 2021Q3

REPORT INFORMATION
  Report Type: Spontaneous
  Country: US (occurrence: US)
  Receive Date: 20210818
  Receipt Date: 20210818
  Transmission Date: 20211014
  Serious: Yes (Hospitalization)
  Sender: FDA-Public Use
  Company Number: US-FRESENIUS MEDICAL CARE RENAL THERAPIES GROUP-FMC-2107-001126

PATIENT
  Age: 77 Year
  Sex: Male

DRUGS (3)
  1. DELFLEX WITH DEXTROSE 4.25% LOW MAGNESIUM LOW CALCIUM [Suspect]
     Active Substance: CALCIUM CHLORIDE\DEXTROSE\MAGNESIUM CHLORIDE\SODIUM CHLORIDE\SODIUM LACTATE
     Indication: END STAGE RENAL DISEASE
     Dosage: EXCHANGES 5, FILL VOLUME 2500 ML, LAST FILL VOLUME NONE, TOTAL VOLUME 12,500 ML, DWELL TIME 1 HOUR 2
     Route: 033
  2. DELFLEX WITH DEXTROSE 1.5% LOW MAGNESIUM LOW CALCIUM [Suspect]
     Active Substance: CALCIUM CHLORIDE\DEXTROSE\MAGNESIUM CHLORIDE\SODIUM CHLORIDE\SODIUM LACTATE
     Indication: END STAGE RENAL DISEASE
     Dosage: EXCHANGES 5, FILL VOLUME 2500 ML, LAST FILL VOLUME NONE, TOTAL VOLUME 12,500 ML, DWELL TIME 1 HOUR 2
     Route: 033
  3. DELFLEX WITH DEXTROSE 2.5% LOW MAGNESIUM LOW CALCIUM [Suspect]
     Active Substance: CALCIUM CHLORIDE\DEXTROSE\MAGNESIUM CHLORIDE\SODIUM CHLORIDE\SODIUM LACTATE
     Indication: END STAGE RENAL DISEASE
     Dosage: EXCHANGES 5, FILL VOLUME 2500 ML, LAST FILL VOLUME NONE, TOTAL VOLUME 12,500 ML, DWELL TIME 1 HOUR 2
     Route: 033

REACTIONS (1)
  - Peritonitis bacterial [Unknown]
